FAERS Safety Report 5228758-2 (Version None)
Quarter: 2007Q1

REPORT INFORMATION
  Report Type: 
  Country: None (occurrence: None)
  Receive Date: 20070131
  Receipt Date: 20070124
  Transmission Date: 20070707
  Serious: Yes (Life-Threatening)
  Sender: FDA-Public Use
  Company Number: 2007SP000488

PATIENT
  Age: 42 Year
  Sex: Female
  Weight: 66 kg

DRUGS (10)
  1. TEMODAL [Suspect]
     Indication: ANAPLASTIC ASTROCYTOMA
     Dosage: 150 MG/M2; QD; PO
     Route: 048
     Dates: start: 20061228, end: 20070101
  2. NIDRAN (PREV.) [Concomitant]
  3. RADIOTHERAPY (PREV.) [Concomitant]
  4. ALEVIATIN (CON.) [Concomitant]
  5. BISOLVON (CON.) [Concomitant]
  6. ULCERLMIN (CON.) [Concomitant]
  7. THYRADIN S (CON.) [Concomitant]
  8. ZANTAC (CON.) [Concomitant]
  9. PREDONINE (CON.) [Concomitant]
  10. KYTRIL (CON.) [Concomitant]

REACTIONS (3)
  - BRAIN SCAN ABNORMAL [None]
  - DEPRESSED LEVEL OF CONSCIOUSNESS [None]
  - TUMOUR HAEMORRHAGE [None]
